FAERS Safety Report 12436691 (Version 3)
Quarter: 2016Q3

REPORT INFORMATION
  Report Type: Report from Study
  Country: IT (occurrence: IT)
  Receive Date: 20160606
  Receipt Date: 20160701
  Transmission Date: 20161109
  Serious: Yes (Other)
  Sender: FDA-Public Use
  Company Number: IT-ACCORD-041109

PATIENT
  Age: 57 Year
  Sex: Female

DRUGS (10)
  1. MYCOPHENOLIC ACID. [Suspect]
     Active Substance: MYCOPHENOLIC ACID
     Indication: PROPHYLAXIS AGAINST TRANSPLANT REJECTION
     Route: 048
     Dates: start: 20121007
  2. CALCITRIOL. [Concomitant]
     Active Substance: CALCITRIOL
  3. ZYLORIC [Concomitant]
     Active Substance: ALLOPURINOL
  4. EUTIROX [Concomitant]
     Active Substance: LEVOTHYROXINE SODIUM
  5. CARDIOASPIRIN [Concomitant]
     Active Substance: ASPIRIN
  6. ADVAGRAF [Suspect]
     Active Substance: TACROLIMUS
     Indication: PROPHYLAXIS AGAINST TRANSPLANT REJECTION
     Route: 048
     Dates: start: 20121007, end: 20150917
  7. PROVISACOR [Concomitant]
     Active Substance: ROSUVASTATIN
  8. TENORMIN [Concomitant]
     Active Substance: ATENOLOL
  9. GAVISCON [Concomitant]
     Active Substance: ALUMINUM HYDROXIDE\MAGNESIUM CARBONATE
  10. LANSOX [Concomitant]
     Active Substance: LANSOPRAZOLE

REACTIONS (1)
  - Dermatitis bullous [Recovering/Resolving]

NARRATIVE: CASE EVENT DATE: 20150917
